FAERS Safety Report 10169069 (Version 1)
Quarter: 2014Q2

REPORT INFORMATION
  Report Type: Spontaneous
  Country: FR (occurrence: FR)
  Receive Date: 20140513
  Receipt Date: 20140513
  Transmission Date: 20141212
  Serious: Yes (Hospitalization)
  Sender: FDA-Public Use
  Company Number: FR-SA-2014SA058663

PATIENT
  Age: 64 Year
  Sex: Male
  Weight: 70 kg

DRUGS (9)
  1. EVOLTRA [Suspect]
     Indication: ACUTE MYELOID LEUKAEMIA
     Route: 042
     Dates: start: 20140327, end: 20140331
  2. BACTRIM [Suspect]
     Indication: PROPHYLAXIS
     Route: 048
     Dates: start: 20140324, end: 20140330
  3. ZELITREX [Concomitant]
     Indication: PROPHYLAXIS
     Route: 048
  4. AUGMENTIN [Concomitant]
     Indication: PROPHYLAXIS
     Route: 048
  5. BUSILVEX [Concomitant]
     Route: 042
     Dates: start: 20140327
  6. ENDOXAN [Concomitant]
     Route: 042
     Dates: start: 20140327
  7. TRIFLUCAN [Concomitant]
     Indication: PROPHYLAXIS
     Route: 048
     Dates: start: 20140324
  8. ZYLORIC [Concomitant]
     Indication: PROPHYLAXIS
     Route: 048
     Dates: start: 20140324
  9. ARACYTINE [Concomitant]
     Indication: ACUTE MYELOID LEUKAEMIA
     Dates: end: 201404

REACTIONS (2)
  - Hepatocellular injury [Recovering/Resolving]
  - Off label use [Recovering/Resolving]
